FAERS Safety Report 13701676 (Version 2)
Quarter: 2017Q3

REPORT INFORMATION
  Report Type: Spontaneous
  Country: JP (occurrence: JP)
  Receive Date: 20170629
  Receipt Date: 20170731
  Transmission Date: 20171127
  Serious: Yes (Hospitalization)
  Sender: FDA-Public Use
  Company Number: JP-ROCHE-1951729

PATIENT
  Age: 68 Year
  Sex: Female

DRUGS (1)
  1. BONVIVA [Suspect]
     Active Substance: IBANDRONATE SODIUM
     Indication: OSTEOPOROSIS
     Dosage: DOSAGE IS UNCERTAIN
     Route: 042

REACTIONS (3)
  - Back pain [Recovering/Resolving]
  - Mesenteric panniculitis [Recovered/Resolved]
  - Chest pain [Recovering/Resolving]
